FAERS Safety Report 5063554-0 (Version None)
Quarter: 2006Q3

REPORT INFORMATION
  Report Type: 
  Country: None (occurrence: None)
  Receive Date: 20060727
  Receipt Date: 20060526
  Transmission Date: 20061208
  Serious: Yes (Hospitalization, Other)
  Sender: FDA-Public Use
  Company Number: 2006AP02401

PATIENT
  Age: 23920 Day
  Sex: Female
  Weight: 53 kg

DRUGS (10)
  1. IRESSA [Suspect]
     Indication: LUNG ADENOCARCINOMA
     Route: 048
     Dates: start: 20060422, end: 20060509
  2. IRESSA [Suspect]
     Indication: NON-SMALL CELL LUNG CANCER
     Route: 048
     Dates: start: 20060422, end: 20060509
  3. IRESSA [Suspect]
     Route: 048
     Dates: start: 20060513, end: 20060520
  4. IRESSA [Suspect]
     Route: 048
     Dates: start: 20060513, end: 20060520
  5. CALBLOCK [Concomitant]
     Indication: HYPERTENSION
     Route: 048
     Dates: start: 20060313, end: 20060522
  6. ALESION [Concomitant]
     Indication: RASH
     Route: 048
     Dates: start: 20060403
  7. GASTER D [Concomitant]
     Indication: GASTRITIS
     Route: 048
     Dates: start: 20060403
  8. ALLOPURINOL [Concomitant]
     Indication: HYPERURICAEMIA
     Route: 048
     Dates: start: 20060427, end: 20060512
  9. DEPAS [Concomitant]
     Indication: ANXIETY
     Route: 048
     Dates: start: 20060511, end: 20060520
  10. MEVALOTIN [Concomitant]
     Indication: HYPERLIPIDAEMIA
     Route: 048
     Dates: end: 20060520

REACTIONS (4)
  - ANXIETY [None]
  - HEPATITIS [None]
  - LUNG DISORDER [None]
  - PYREXIA [None]
